FAERS Safety Report 6211586-9 (Version None)
Quarter: 2009Q2

REPORT INFORMATION
  Report Type: 
  Country: None (occurrence: None)
  Receive Date: 20090528
  Receipt Date: 20090514
  Transmission Date: 20091009
  Serious: Yes (Disabling)
  Sender: FDA-Public Use
  Company Number: 273805

PATIENT
  Age: 8 Week
  Sex: Female

DRUGS (4)
  1. CARBOPLATIN [Suspect]
     Indication: RETINOBLASTOMA UNILATERAL
  2. ETOPOSIDE [Suspect]
     Indication: RETINOBLASTOMA UNILATERAL
  3. TIMOLOL MALEATE [Concomitant]
  4. ACETAZOLAMIDE [Concomitant]

REACTIONS (10)
  - CONJUNCTIVAL HYPERAEMIA [None]
  - CORNEAL OEDEMA [None]
  - DEHYDRATION [None]
  - EYE EXCISION [None]
  - EYE PAIN [None]
  - FEEDING DISORDER OF INFANCY OR EARLY CHILDHOOD [None]
  - GLAUCOMA [None]
  - IRIS NEOVASCULARISATION [None]
  - NEOPLASM PROGRESSION [None]
  - TUMOUR NECROSIS [None]
